FAERS Safety Report 22048964 (Version 1)
Quarter: 2023Q1

REPORT INFORMATION
  Report Type: Spontaneous
  Country: US (occurrence: None)
  Receive Date: 20230301
  Receipt Date: 20230301
  Transmission Date: 20230417
  Serious: Yes (Other)
  Sender: FDA-Public Use
  Company Number: 2023A045503

PATIENT

DRUGS (2)
  1. BRILINTA [Suspect]
     Active Substance: TICAGRELOR
     Indication: Acute myocardial infarction
     Route: 048
  2. FENTANYL [Suspect]
     Active Substance: FENTANYL
     Route: 041

REACTIONS (3)
  - Gastrointestinal obstruction [Unknown]
  - Cholecystitis [Unknown]
  - Malabsorption [Unknown]
